FAERS Safety Report 12409223 (Version 1)
Quarter: 2016Q2

REPORT INFORMATION
  Report Type: Spontaneous
  Country: US (occurrence: US)
  Receive Date: 20160526
  Receipt Date: 20160526
  Transmission Date: 20160815
  Serious: Yes (Other)
  Sender: FDA-Public Use
  Company Number: US-ABBVIE-16P-163-1634447-00

PATIENT
  Sex: Male

DRUGS (1)
  1. ANDROGEL [Suspect]
     Active Substance: TESTOSTERONE
     Indication: ANDROGEN REPLACEMENT THERAPY
     Route: 061
     Dates: start: 20130328, end: 201306

REACTIONS (4)
  - Cerebrovascular disorder [Unknown]
  - Transient ischaemic attack [Unknown]
  - Deep vein thrombosis [Unknown]
  - Angiopathy [Unknown]

NARRATIVE: CASE EVENT DATE: 20130522
